FAERS Safety Report 7617325-9 (Version None)
Quarter: 2011Q3

REPORT INFORMATION
  Report Type: 
  Country: None (occurrence: None)
  Receive Date: 20110718
  Receipt Date: 20110712
  Transmission Date: 20111222
  Serious: Yes (Death)
  Sender: FDA-Public Use
  Company Number: PHHY2011BR62388

PATIENT
  Sex: Male

DRUGS (3)
  1. DIOVAN [Suspect]
     Dosage: 80 MG, UNK
  2. EXELON [Suspect]
     Dosage: 27MG/15CM2 30 SIST (PATCH)
     Route: 062
  3. EXFORGE [Suspect]
     Dosage: 80 MG VALSARTAN AND 5 MG AMLODIPINE

REACTIONS (1)
  - DEATH [None]
